FAERS Safety Report 6088173-9 (Version None)
Quarter: 2009Q1

REPORT INFORMATION
  Report Type: 
  Country: None (occurrence: None)
  Receive Date: 20090219
  Receipt Date: 20090217
  Transmission Date: 20090719
  Serious: Yes (Death, Other)
  Sender: FDA-Public Use
  Company Number: DE-EBEWE-0188PACLI09

PATIENT
  Age: 64 Year
  Sex: Female
  Weight: 76 kg

DRUGS (3)
  1. PACLITAXEL [Suspect]
     Indication: BREAST CANCER
     Dosage: 300MG; INTRAVENOUS
     Route: 042
     Dates: start: 20081211
  2. PACLITAXEL [Suspect]
     Indication: BREAST CANCER
     Dosage: 18.5 MG; INTRAVENOUS
     Route: 042
     Dates: start: 20081211
  3. GLUCOSE 500MG [Concomitant]

REACTIONS (1)
  - CARDIAC ARREST [None]
